FAERS Safety Report 7335185-0 (Version None)
Quarter: 2011Q1

REPORT INFORMATION
  Report Type: 
  Country: None (occurrence: None)
  Receive Date: 20110302
  Receipt Date: 20110302
  Transmission Date: 20110831
  Serious: No
  Sender: FDA-Public Use
  Company Number: None

PATIENT
  Sex: Male
  Weight: 122.4712 kg

DRUGS (1)
  1. RESTORIL [Suspect]
     Indication: INSOMNIA
     Dosage: 15MG ONE AT BEDTIME ORAL
     Route: 048
     Dates: start: 20110211

REACTIONS (2)
  - NIGHTMARE [None]
  - MIDDLE INSOMNIA [None]
